FAERS Safety Report 5141940-8 (Version None)
Quarter: 2006Q4

REPORT INFORMATION
  Report Type: 
  Country: None (occurrence: None)
  Receive Date: 20061102
  Receipt Date: 20060622
  Transmission Date: 20070319
  Serious: Yes (Hospitalization, Other)
  Sender: FDA-Public Use
  Company Number: PHBS2006NO09347

PATIENT
  Age: 46 Year
  Sex: Male

DRUGS (3)
  1. DIOVAN [Suspect]
     Indication: HYPERTENSION
     Dosage: 80 MG/DAY
     Dates: start: 20011227, end: 20021011
  2. DIOVAN [Suspect]
     Dosage: 160 MG/DAY
     Dates: start: 20021011, end: 20021111
  3. LEVAXIN [Concomitant]
     Indication: HYPOTHYROIDISM
     Dosage: 0.15 MG/DAY
     Dates: start: 20000301

REACTIONS (3)
  - BLOOD PRESSURE INADEQUATELY CONTROLLED [None]
  - CEREBRAL INFARCTION [None]
  - DRUG EFFECT DECREASED [None]
